FAERS Safety Report 7200743-0 (Version None)
Quarter: 2010Q4

REPORT INFORMATION
  Report Type: 
  Country: None (occurrence: None)
  Receive Date: 20101228
  Receipt Date: 20101223
  Transmission Date: 20110411
  Serious: Yes (Other)
  Sender: FDA-Public Use
  Company Number: BR-ABBOTT-10P-020-0693519-00

PATIENT
  Sex: Female
  Weight: 71 kg

DRUGS (13)
  1. HUMIRA [Suspect]
     Indication: RHEUMATOID ARTHRITIS
     Route: 058
     Dates: start: 20101125
  2. VERAPAMIL [Concomitant]
     Indication: ARRHYTHMIA
     Route: 048
  3. VERAPAMIL [Concomitant]
     Indication: HYPERTENSION
  4. LOSARTAN [Concomitant]
     Indication: HYPERTENSION
     Route: 048
  5. HYDROCHLOROTHIAZIDE [Concomitant]
     Indication: HYPERTENSION
     Route: 048
     Dates: start: 20080101
  6. MESALAZINE [Concomitant]
     Indication: COLITIS ULCERATIVE
     Route: 048
  7. CLONAZEPAM [Concomitant]
     Indication: DEPRESSION
     Route: 048
  8. CITALOPRAM [Concomitant]
     Indication: DEPRESSION
     Route: 048
     Dates: start: 20080101
  9. TRAVOPROST [Concomitant]
     Indication: GLAUCOMA
     Dates: start: 20080101
  10. LACRISTILL [Concomitant]
     Indication: DRY EYE
     Dates: start: 20080101
  11. METHOTREXATE [Concomitant]
     Indication: BONE PAIN
     Route: 048
  12. DYPIRONE [Concomitant]
     Indication: PAIN
     Route: 048
  13. DICLOFENAC [Concomitant]
     Indication: PAIN
     Route: 048

REACTIONS (21)
  - APHASIA [None]
  - ASTHENIA [None]
  - BONE PAIN [None]
  - CRYING [None]
  - DECREASED APPETITE [None]
  - DEHYDRATION [None]
  - DIARRHOEA [None]
  - DYSPNOEA [None]
  - DYSURIA [None]
  - GENERALISED ERYTHEMA [None]
  - HAEMATOCHEZIA [None]
  - HALLUCINATION [None]
  - LOGORRHOEA [None]
  - MOBILITY DECREASED [None]
  - NAUSEA [None]
  - NON-CARDIAC CHEST PAIN [None]
  - PAIN [None]
  - PYREXIA [None]
  - RENAL PAIN [None]
  - SELF INJURIOUS BEHAVIOUR [None]
  - VOMITING [None]
